FAERS Safety Report 6387143-0 (Version None)
Quarter: 2009Q4

REPORT INFORMATION
  Report Type: 
  Country: None (occurrence: None)
  Receive Date: 20091002
  Receipt Date: 20090924
  Transmission Date: 20100525
  Serious: Yes (Hospitalization)
  Sender: FDA-Public Use
  Company Number: PHHY2009JP41237

PATIENT

DRUGS (4)
  1. TEGRETOL [Suspect]
     Indication: EPILEPSY
     Dosage: UNK
     Dates: start: 20080901, end: 20090121
  2. MINIMAX [Concomitant]
     Dosage: UNK
     Dates: start: 20010101
  3. DEPAKENE [Concomitant]
     Dosage: UNK
     Dates: start: 20010101
  4. WARFARIN SODIUM [Concomitant]
     Dosage: UNK
     Dates: start: 20080901

REACTIONS (5)
  - DRUG ERUPTION [None]
  - EOSINOPHIL COUNT INCREASED [None]
  - LIVER DISORDER [None]
  - PULMONARY CONGESTION [None]
  - TUBULOINTERSTITIAL NEPHRITIS [None]
